FAERS Safety Report 5574834-4 (Version None)
Quarter: 2007Q4

REPORT INFORMATION
  Report Type: 
  Country: None (occurrence: None)
  Receive Date: 20071227
  Receipt Date: 20071221
  Transmission Date: 20080405
  Serious: Yes (Death, Hospitalization, Other)
  Sender: FDA-Public Use
  Company Number: US-BRISTOL-MYERS SQUIBB COMPANY-14016141

PATIENT
  Age: 5 Decade
  Sex: Female

DRUGS (2)
  1. IXEMPRA [Suspect]
     Indication: BREAST CANCER METASTATIC
  2. XELODA [Suspect]
     Indication: BREAST CANCER METASTATIC

REACTIONS (4)
  - DYSPNOEA [None]
  - PANCYTOPENIA [None]
  - PULMONARY TOXICITY [None]
  - RESPIRATORY ARREST [None]
